FAERS Safety Report 7457153-0 (Version None)
Quarter: 2011Q2

REPORT INFORMATION
  Report Type: 
  Country: None (occurrence: None)
  Receive Date: 20110504
  Receipt Date: 20110422
  Transmission Date: 20111010
  Serious: Yes (Hospitalization)
  Sender: FDA-Public Use
  Company Number: FR-JNJFOC-20110411275

PATIENT
  Age: 90 Year
  Sex: Female

DRUGS (12)
  1. LOVENOX [Suspect]
     Indication: PRODUCT USED FOR UNKNOWN INDICATION
     Route: 065
  2. CITALOPRAM HYDROBROMIDE [Concomitant]
     Route: 065
  3. SERESTA [Concomitant]
     Route: 065
  4. TAVANIC [Suspect]
     Route: 048
  5. ATROVENT [Suspect]
     Indication: PRODUCT USED FOR UNKNOWN INDICATION
     Route: 065
  6. CALCIDOSE VITAMIN D [Concomitant]
     Route: 065
  7. TAVANIC [Suspect]
     Indication: LUNG DISORDER
     Route: 048
  8. GAVISCON [Suspect]
     Indication: PRODUCT USED FOR UNKNOWN INDICATION
     Route: 065
  9. PULMICORT [Suspect]
     Indication: PRODUCT USED FOR UNKNOWN INDICATION
     Route: 065
  10. AMLODIPINE BESYLATE [Concomitant]
     Route: 065
  11. BRICANYL [Suspect]
     Indication: PRODUCT USED FOR UNKNOWN INDICATION
     Route: 065
  12. ROCEPHIN [Concomitant]
     Indication: LUNG DISORDER
     Route: 065

REACTIONS (1)
  - NEUTROPENIA [None]
